FAERS Safety Report 16880194 (Version 2)
Quarter: 2019Q4

REPORT INFORMATION
  Report Type: Spontaneous
  Country: AU (occurrence: AU)
  Receive Date: 20191003
  Receipt Date: 20191010
  Transmission Date: 20200122
  Serious: Yes (Other)
  Sender: FDA-Public Use
  Company Number: AU-LUPIN PHARMACEUTICALS INC.-2019-06249

PATIENT
  Age: 26 Year
  Sex: Male

DRUGS (6)
  1. METOCLOPRAMIDE. [Suspect]
     Active Substance: METOCLOPRAMIDE
     Indication: VOMITING
     Dosage: UNK (LARGE DOSES)
     Route: 065
  2. PROCHLORPERAZINE. [Suspect]
     Active Substance: PROCHLORPERAZINE
     Indication: CYCLIC VOMITING SYNDROME
  3. METOCLOPRAMIDE. [Suspect]
     Active Substance: METOCLOPRAMIDE
     Indication: CYCLIC VOMITING SYNDROME
     Dosage: UNK
     Route: 030
  4. ONDASETRON [ONDANSETRON] [Concomitant]
     Indication: CYCLIC VOMITING SYNDROME
  5. ONDASETRON [ONDANSETRON] [Concomitant]
     Indication: VOMITING
     Dosage: UNK
     Route: 048
  6. PROCHLORPERAZINE. [Suspect]
     Active Substance: PROCHLORPERAZINE
     Indication: VOMITING
     Dosage: UNK
     Route: 030

REACTIONS (2)
  - Self-medication [Unknown]
  - Spasmodic dysphonia [Recovering/Resolving]
